FAERS Safety Report 19490905 (Version 1)
Quarter: 2021Q3

REPORT INFORMATION
  Report Type: Report from Study
  Country: US (occurrence: US)
  Receive Date: 20210705
  Receipt Date: 20210705
  Transmission Date: 20211014
  Serious: Yes (Death, Hospitalization)
  Sender: FDA-Public Use
  Company Number: US-TAIHO ONCOLOGY  INC-EU-2021-02072

PATIENT
  Age: 77 Year
  Sex: Male

DRUGS (3)
  1. LEVALBUTEROL. [Concomitant]
     Active Substance: LEVALBUTEROL
  2. TAMSULOSIN [Concomitant]
     Active Substance: TAMSULOSIN
  3. LONSURF [Suspect]
     Active Substance: TIPIRACIL HYDROCHLORIDE\TRIFLURIDINE
     Indication: RECTOSIGMOID CANCER
     Dosage: CYCLE UNKNOWN
     Route: 048
     Dates: start: 20210603, end: 20210625

REACTIONS (1)
  - Sepsis [Fatal]

NARRATIVE: CASE EVENT DATE: 202106
